FAERS Safety Report 4445090-5 (Version None)
Quarter: 2004Q3

REPORT INFORMATION
  Report Type: 
  Country: None (occurrence: None)
  Receive Date: 20040903
  Receipt Date: 20040831
  Transmission Date: 20050211
  Serious: Yes (Hospitalization)
  Sender: FDA-Public Use
  Company Number: 200412611GDS

PATIENT
  Age: 23 Month
  Sex: Male

DRUGS (2)
  1. 10% NEO-SYNEPHRINE (PHENYLEPHRINE HYDROCHLORIDE) [Suspect]
     Dosage: OPHTHALMIC (OCULAR)
     Route: 047
  2. CYCLOGYL (CYCLOPENTOLATE HYDROCHLORIDE) [Suspect]
     Dosage: OPHTHALMIC (OCULAR)
     Route: 047

REACTIONS (5)
  - BLOOD CHLORIDE DECREASED [None]
  - BLOOD GLUCOSE INCREASED [None]
  - BLOOD POTASSIUM INCREASED [None]
  - BLOOD SODIUM DECREASED [None]
  - GRAND MAL CONVULSION [None]
